FAERS Safety Report 9190142 (Version 1)
Quarter: 2013Q1

REPORT INFORMATION
  Report Type: Spontaneous
  Country: US (occurrence: None)
  Receive Date: 20120703
  Receipt Date: 20120703
  Transmission Date: 20140127
  Serious: Yes (Other)
  Sender: FDA-Public Use
  Company Number: PHEH2012US006146

PATIENT
  Age: 62 Year
  Sex: Female

DRUGS (1)
  1. GILENYA (FTY) [Suspect]
     Dates: start: 201103

REACTIONS (2)
  - Pneumonia [None]
  - White blood cell count decreased [None]
